FAERS Safety Report 9160204 (Version 1)
Quarter: 2013Q1

REPORT INFORMATION
  Report Type: Report from Study
  Country: FR (occurrence: FR)
  Receive Date: 20130313
  Receipt Date: 20130313
  Transmission Date: 20140127
  Serious: Yes (Hospitalization)
  Sender: FDA-Public Use
  Company Number: FR-ROCHE-1199490

PATIENT
  Age: 65 Year
  Sex: Female
  Weight: 61.5 kg

DRUGS (4)
  1. TOCILIZUMAB [Suspect]
     Indication: RHEUMATOID ARTHRITIS
     Dosage: 480 MG
     Route: 042
     Dates: start: 20120611, end: 20120809
  2. ARAVA [Concomitant]
     Route: 065
  3. CORTANCYL [Concomitant]
     Dosage: DOSE DECREASED
     Route: 065
     Dates: start: 20120809
  4. CORTANCYL [Concomitant]
     Route: 065

REACTIONS (1)
  - Neurolysis [Recovered/Resolved]
